FAERS Safety Report 5613738-5 (Version None)
Quarter: 2008Q1

REPORT INFORMATION
  Report Type: 
  Country: None (occurrence: None)
  Receive Date: 20080205
  Receipt Date: 20080122
  Transmission Date: 20080703
  Serious: Yes (Other)
  Sender: FDA-Public Use
  Company Number: US-AMGEN-QUU261813

PATIENT
  Sex: Female

DRUGS (4)
  1. ENBREL [Suspect]
     Indication: ANKYLOSING SPONDYLITIS
     Route: 058
     Dates: start: 20001201
  2. PREDNISONE TAB [Concomitant]
     Route: 048
  3. INDOCIN [Concomitant]
     Route: 048
  4. TYLENOL [Concomitant]

REACTIONS (3)
  - ANKYLOSING SPONDYLITIS [None]
  - PREMATURE LABOUR [None]
  - PREMATURE RUPTURE OF MEMBRANES [None]
